FAERS Safety Report 7319089-5 (Version None)
Quarter: 2011Q1

REPORT INFORMATION
  Report Type: 
  Country: None (occurrence: None)
  Receive Date: 20110228
  Receipt Date: 20110211
  Transmission Date: 20110831
  Serious: Yes (Hospitalization)
  Sender: FDA-Public Use
  Company Number: US-BAYER-201037450NA

PATIENT
  Sex: Female

DRUGS (7)
  1. VICODIN [Concomitant]
     Dosage: 350 MG, PRN
  2. BUDEPRION [Concomitant]
     Dosage: 150 MG, BID
  3. OCELLA [Suspect]
     Indication: PRODUCT USED FOR UNKNOWN INDICATION
     Route: 048
     Dates: start: 20061205
  4. YASMIN [Suspect]
     Indication: PRODUCT USED FOR UNKNOWN INDICATION
     Route: 048
     Dates: start: 20061205
  5. YAZ [Suspect]
     Indication: PRODUCT USED FOR UNKNOWN INDICATION
     Route: 048
     Dates: start: 20061205
  6. METFORMIN [Concomitant]
     Dosage: 1000 MG, UNK
  7. SYNTHROID [Concomitant]
     Dosage: 112 MG, QD

REACTIONS (5)
  - DECREASED APPETITE [None]
  - CHOLECYSTITIS [None]
  - ABDOMINAL PAIN UPPER [None]
  - NAUSEA [None]
  - DYSPNOEA [None]
